FAERS Safety Report 9738514 (Version 3)
Quarter: 2014Q2

REPORT INFORMATION
  Report Type: Spontaneous
  Country: BR (occurrence: BR)
  Receive Date: 20131208
  Receipt Date: 20140404
  Transmission Date: 20141212
  Serious: Yes (Other)
  Sender: FDA-Public Use
  Company Number: BR-ROCHE-1283817

PATIENT
  Sex: Male
  Weight: 94 kg

DRUGS (4)
  1. AVASTIN [Suspect]
     Indication: DIABETIC RETINOPATHY
     Route: 047
     Dates: start: 2011
  2. COZAAR [Concomitant]
     Indication: HYPERTENSION
     Dosage: IN THE MORNINGS
     Route: 065
     Dates: start: 2003
  3. NORVASC [Concomitant]
     Indication: HYPERTENSION
     Dosage: IN THE MORNINGS
     Route: 065
     Dates: start: 2008
  4. INSULIN [Concomitant]
     Indication: DIABETES MELLITUS
     Route: 065
     Dates: start: 1993

REACTIONS (3)
  - Diabetic retinopathy [Not Recovered/Not Resolved]
  - Disease progression [Recovered/Resolved]
  - Off label use [Unknown]
